FAERS Safety Report 24583344 (Version 1)
Quarter: 2024Q4

REPORT INFORMATION
  Report Type: Spontaneous
  Country: US (occurrence: US)
  Receive Date: 20241106
  Receipt Date: 20241106
  Transmission Date: 20250114
  Serious: Yes (Other)
  Sender: STRIDES
  Company Number: US-STRIDES ARCOLAB LIMITED-2024SP013149

PATIENT
  Age: 52 Year
  Sex: Male

DRUGS (17)
  1. AZITHROMYCIN [Suspect]
     Active Substance: AZITHROMYCIN
     Indication: Babesiosis
     Dosage: UNK
     Route: 065
  2. AZITHROMYCIN [Suspect]
     Active Substance: AZITHROMYCIN
     Indication: Infection
     Dosage: UNK, RESTARTED
     Route: 065
  3. AZITHROMYCIN [Suspect]
     Active Substance: AZITHROMYCIN
     Dosage: UNK, AGAIN ADDED TO THE REGIMEN
     Route: 065
  4. AZITHROMYCIN [Suspect]
     Active Substance: AZITHROMYCIN
     Dosage: 500 MILLIGRAM, QD
     Route: 065
  5. QUININE [Suspect]
     Active Substance: QUININE
     Indication: Babesiosis
     Dosage: UNK
     Route: 065
  6. QUININE [Suspect]
     Active Substance: QUININE
     Indication: Infection
  7. ATOVAQUONE [Suspect]
     Active Substance: ATOVAQUONE
     Indication: Babesiosis
     Dosage: UNK
     Route: 065
  8. ATOVAQUONE [Suspect]
     Active Substance: ATOVAQUONE
     Indication: Infection
     Dosage: UNK, RESTARTED
     Route: 065
  9. ATOVAQUONE [Suspect]
     Active Substance: ATOVAQUONE
     Dosage: UNK, AGAIN ADDED TO THE REGIMEN
     Route: 065
  10. ATOVAQUONE [Suspect]
     Active Substance: ATOVAQUONE
     Dosage: 1500 MILLIGRAM, QD
     Route: 065
  11. RITUXIMAB [Concomitant]
     Active Substance: RITUXIMAB
     Indication: Follicular lymphoma
     Dosage: UNK
     Route: 065
  12. CYCLOPHOSPHAMIDE [Concomitant]
     Active Substance: CYCLOPHOSPHAMIDE
     Indication: Follicular lymphoma
     Dosage: UNK
     Route: 065
  13. DOXORUBICIN [Concomitant]
     Active Substance: DOXORUBICIN
     Indication: Follicular lymphoma
     Dosage: UNK
     Route: 065
  14. VINCRISTINE [Concomitant]
     Active Substance: VINCRISTINE
     Indication: Follicular lymphoma
     Dosage: UNK
     Route: 065
  15. PREDNISONE [Concomitant]
     Active Substance: PREDNISONE
     Indication: Follicular lymphoma
     Dosage: UNK
     Route: 065
  16. CLINDAMYCIN [Concomitant]
     Active Substance: CLINDAMYCIN
     Indication: Babesiosis
     Dosage: UNK
     Route: 065
  17. CLINDAMYCIN [Concomitant]
     Active Substance: CLINDAMYCIN
     Indication: Infection

REACTIONS (2)
  - Drug ineffective [Unknown]
  - Off label use [Unknown]
